FAERS Safety Report 7014635-3 (Version None)
Quarter: 2010Q3

REPORT INFORMATION
  Report Type: 
  Country: None (occurrence: None)
  Receive Date: 20100927
  Receipt Date: 20100917
  Transmission Date: 20110219
  Serious: Yes (Other)
  Sender: FDA-Public Use
  Company Number: JP-ROCHE-722629

PATIENT
  Sex: Male
  Weight: 67 kg

DRUGS (21)
  1. VESANOID [Suspect]
     Indication: ACUTE PROMYELOCYTIC LEUKAEMIA
     Route: 048
     Dates: start: 20100721
  2. BAKTAR [Suspect]
     Indication: INFECTION PROPHYLAXIS
     Dosage: NOTE: DOSAGE IS UNCERTAIN
     Route: 048
     Dates: start: 20100730, end: 20100818
  3. POLYMYXIN-B-SULFATE [Suspect]
     Indication: INFECTION PROPHYLAXIS
     Dosage: DOSAGE IS UNCERTAIN
     Route: 048
     Dates: start: 20100730, end: 20100818
  4. FUNGIZONE [Suspect]
     Indication: INFECTION PROPHYLAXIS
     Dosage: DOSAGE IS UNCERTAIN
     Route: 048
     Dates: start: 20100730, end: 20100818
  5. HICALIQ [Suspect]
     Dosage: DRUG NAME: HICALIQ RF (INTRAVENOUS HYPERALIMENTATIVE BASIC SOLUTION), DOSAGE UNCERTAIN
     Route: 042
     Dates: start: 20100729, end: 20100817
  6. AMLODIPINE BESYLATE [Suspect]
     Dosage: AMLODIN OD, DOSAGE IS UNCERTAIN
     Route: 048
     Dates: start: 20100802, end: 20100818
  7. MEROPEN [Suspect]
     Indication: INFECTION
     Dosage: DOSAGE IS UNCERTAIN
     Route: 041
     Dates: start: 20100726, end: 20100816
  8. OMEPRAL [Suspect]
     Indication: PROPHYLAXIS AGAINST GASTROINTESTINAL ULCER
     Dosage: DOSAGE IS UNCERTAIN
     Route: 041
     Dates: start: 20100721, end: 20100818
  9. ALOSITOL [Suspect]
     Indication: HYPERURICAEMIA
     Route: 048
     Dates: start: 20100721, end: 20100801
  10. ADONA [Suspect]
     Indication: HAEMOSTASIS
     Route: 041
     Dates: start: 20100721, end: 20100803
  11. AMINO ACID INJ [Suspect]
     Dosage: INDICATION FOR USE: IVH
     Route: 042
     Dates: start: 20100729, end: 20100817
  12. IDAMYCIN [Concomitant]
     Route: 042
     Dates: start: 20100721, end: 20100723
  13. CYLOCIDE [Concomitant]
     Route: 042
     Dates: start: 20100721, end: 20100727
  14. NAFAMOSTAT [Concomitant]
     Route: 042
     Dates: start: 20100721, end: 20100723
  15. HUMULIN R [Concomitant]
     Route: 042
     Dates: start: 20100721
  16. SODIUM BICARBONATE [Concomitant]
     Dosage: DRUG: JUSO
     Route: 048
     Dates: start: 20100721, end: 20100820
  17. PERDIPINE [Concomitant]
     Route: 041
     Dates: start: 20100721
  18. PERDIPINE [Concomitant]
     Dosage: ROUTE: ORAL AND FORM: TABLET. DOSAGE IS UNCERTAIN
     Route: 041
     Dates: start: 20100819
  19. FIRSTCIN [Concomitant]
     Route: 041
     Dates: start: 20100722, end: 20100726
  20. CARBENIN [Concomitant]
     Dosage: DOSAGE IS UNCERTAIN
     Route: 041
     Dates: start: 20100816, end: 20100823
  21. REMINARON [Concomitant]
     Dosage: DOSAGE IS UNCERTAIN
     Route: 042
     Dates: start: 20100723, end: 20100818

REACTIONS (1)
  - HEPATIC FUNCTION ABNORMAL [None]
